FAERS Safety Report 21272550 (Version 2)
Quarter: 2022Q3

REPORT INFORMATION
  Report Type: Spontaneous
  Country: US (occurrence: US)
  Receive Date: 20220830
  Receipt Date: 20220914
  Transmission Date: 20221027
  Serious: Yes (Life-Threatening, Hospitalization, Other)
  Sender: FDA-Public Use
  Company Number: US-009507513-2208USA009508

PATIENT
  Age: 73 Year
  Sex: Female
  Weight: 56.236 kg

DRUGS (6)
  1. KEYTRUDA [Suspect]
     Active Substance: PEMBROLIZUMAB
     Indication: Lung carcinoma cell type unspecified stage IV
     Dosage: EVERY 3 WEEKS
     Route: 042
     Dates: start: 20220817, end: 20220817
  2. FENTANYL [Concomitant]
     Active Substance: FENTANYL
     Dosage: PATCH
  3. DILAUDID [Concomitant]
     Active Substance: HYDROMORPHONE HYDROCHLORIDE
  4. METOCLOPRAMIDE [Concomitant]
     Active Substance: METOCLOPRAMIDE
  5. PANTOPRAZOLE [Concomitant]
     Active Substance: PANTOPRAZOLE
  6. PERI-COLACE-T [Concomitant]

REACTIONS (8)
  - Anaphylactic reaction [Recovered/Resolved]
  - Cardiac disorder [Recovered/Resolved]
  - Chest pain [Recovered/Resolved]
  - Dyspnoea [Recovered/Resolved]
  - Cough [Recovered/Resolved]
  - Heart rate increased [Recovered/Resolved]
  - Adverse reaction [Recovered/Resolved]
  - Hospice care [Unknown]

NARRATIVE: CASE EVENT DATE: 20220817
